FAERS Safety Report 5899265-9 (Version None)
Quarter: 2008Q3

REPORT INFORMATION
  Report Type: 
  Country: None (occurrence: None)
  Receive Date: 20080925
  Receipt Date: 20080917
  Transmission Date: 20090109
  Serious: Yes (Other)
  Sender: FDA-Public Use
  Company Number: US-GILEAD-2008-0018100

PATIENT
  Age: 25 Year
  Sex: Female
  Weight: 96 kg

DRUGS (6)
  1. VISTIDE [Suspect]
     Indication: PAPILLOMA VIRAL INFECTION
     Route: 061
     Dates: start: 20080721, end: 20080725
  2. A + D OINTMENT [Concomitant]
  3. TRUVADA [Concomitant]
     Indication: HIV INFECTION
  4. NORVIR [Concomitant]
     Indication: HIV INFECTION
  5. REYATAZ [Concomitant]
     Indication: HIV INFECTION
  6. YASMIN [Concomitant]

REACTIONS (1)
  - VULVITIS [None]
